FAERS Safety Report 7673627-1 (Version None)
Quarter: 2011Q3

REPORT INFORMATION
  Report Type: 
  Country: None (occurrence: None)
  Receive Date: 20110810
  Receipt Date: 20110729
  Transmission Date: 20111222
  Serious: No
  Sender: FDA-Public Use
  Company Number: PHEH2011US00590

PATIENT
  Sex: Male

DRUGS (14)
  1. TASIGNA [Suspect]
     Indication: CHRONIC MYELOID LEUKAEMIA
     Dosage: 200 MG, Q12H
     Route: 048
     Dates: start: 20081203
  2. FLEXERIL [Concomitant]
  3. NORVASC [Concomitant]
  4. IMITREX [Concomitant]
  5. FOLIC ACID [Concomitant]
  6. IMURAN [Concomitant]
  7. PENTASA [Concomitant]
  8. METOCLOPRAMIDE [Concomitant]
  9. IPRATROPIUM BROMIDE [Concomitant]
     Dosage: UNK
  10. CLARITHROMYCIN [Interacting]
     Route: 042
  11. LEVETIRACETAM [Concomitant]
  12. ANAGRELIDE HCL [Concomitant]
  13. PERCOCET [Concomitant]
  14. PROPRANOLOL [Concomitant]

REACTIONS (1)
  - DRUG INTERACTION [None]
